FAERS Safety Report 8177178-X (Version None)
Quarter: 2012Q1

REPORT INFORMATION
  Report Type: 
  Country: None (occurrence: None)
  Receive Date: 20120301
  Receipt Date: 20120223
  Transmission Date: 20120608
  Serious: Yes (Hospitalization, Other)
  Sender: FDA-Public Use
  Company Number: US-BAYER-2011-049534

PATIENT
  Age: 37 Year
  Sex: Female
  Weight: 63 kg

DRUGS (4)
  1. TYLENOL W/ CODEINE NO. 3 [Concomitant]
     Dosage: UNK
     Dates: start: 20080601
  2. PROPOXYPHENE HYDROCHLORIDE [Concomitant]
     Indication: ANALGESIC THERAPY
     Dosage: UNK UNK, PRN
     Dates: start: 20080602
  3. YAZ [Suspect]
     Dosage: UNK
     Dates: start: 20071101, end: 20080602
  4. CIPROFLOXACIN [Concomitant]
     Indication: URINARY TRACT INFECTION
     Dosage: 500 MG, BID
     Dates: start: 20080602, end: 20080608

REACTIONS (24)
  - MOBILITY DECREASED [None]
  - ABNORMAL LOSS OF WEIGHT [None]
  - DEEP VEIN THROMBOSIS [None]
  - ANXIETY [None]
  - MUSCULOSKELETAL DISCOMFORT [None]
  - CHEST PAIN [None]
  - PNEUMOTHORAX [None]
  - NECK PAIN [None]
  - PANIC ATTACK [None]
  - PULMONARY EMBOLISM [None]
  - HAEMATEMESIS [None]
  - DEPRESSION [None]
  - PULMONARY THROMBOSIS [None]
  - MUSCLE SPASMS [None]
  - INSOMNIA [None]
  - VASODILATATION [None]
  - DYSPNOEA [None]
  - BACK PAIN [None]
  - PAIN [None]
  - EMOTIONAL DISTRESS [None]
  - GENERAL PHYSICAL HEALTH DETERIORATION [None]
  - FEAR OF DISEASE [None]
  - SPEECH DISORDER [None]
  - PAIN IN EXTREMITY [None]
